FAERS Safety Report 11049296 (Version 2)
Quarter: 2015Q2

REPORT INFORMATION
  Report Type: Report from Study
  Country: PL (occurrence: PL)
  Receive Date: 20150420
  Receipt Date: 20150504
  Transmission Date: 20150821
  Serious: Yes (Hospitalization)
  Sender: FDA-Public Use
  Company Number: PHHY2015PL042061

PATIENT
  Sex: Male

DRUGS (2)
  1. EXJADE [Suspect]
     Active Substance: DEFERASIROX
     Indication: IRON OVERLOAD
     Dosage: 500 MG/24 HOURS
     Route: 065
     Dates: start: 20141216, end: 20150205
  2. EXJADE [Suspect]
     Active Substance: DEFERASIROX
     Dosage: 500 MG
     Route: 065
     Dates: start: 20150213

REACTIONS (1)
  - Epstein-Barr virus infection [Unknown]
